FAERS Safety Report 18589566 (Version 2)
Quarter: 2020Q4

REPORT INFORMATION
  Report Type: Spontaneous
  Country: DE (occurrence: DE)
  Receive Date: 20201208
  Receipt Date: 20201211
  Transmission Date: 20210114
  Serious: Yes (Other)
  Sender: FDA-Public Use
  Company Number: DE-TEVA-2020-DE-1855016

PATIENT
  Age: 79 Year
  Sex: Male

DRUGS (7)
  1. BISOPROLOL [Interacting]
     Active Substance: BISOPROLOL
     Indication: CARDIAC FAILURE
     Dosage: 5 MG -0- 7.5 MG
     Route: 048
     Dates: start: 202007
  2. TELMISARTAN. [Interacting]
     Active Substance: TELMISARTAN
     Indication: CARDIAC FAILURE
     Dosage: 20 MILLIGRAM DAILY; (1-0-0)
     Route: 048
     Dates: start: 202007
  3. MOXONIDINE [Interacting]
     Active Substance: MOXONIDINE
     Indication: CARDIAC FAILURE
     Dosage: .6 MILLIGRAM DAILY; (1-0-1)
     Route: 048
     Dates: start: 202007
  4. FINASTERIDE. [Interacting]
     Active Substance: FINASTERIDE
     Indication: CARDIAC FAILURE
     Dosage: 5 MILLIGRAM DAILY; (0-0-1)
     Route: 048
     Dates: start: 202007
  5. RIVAROXABAN [Interacting]
     Active Substance: RIVAROXABAN
     Indication: CARDIAC FAILURE
     Dosage: 20 MILLIGRAM DAILY;  (1-0-0)
     Route: 048
     Dates: start: 202007
  6. TORASEMIDE [Suspect]
     Active Substance: TORSEMIDE
     Indication: CARDIAC FAILURE
     Dosage: 10 MILLIGRAM DAILY; (1-0-0)
     Route: 048
     Dates: start: 202007
  7. BISOLICH 5 MG TABLETTEN [Interacting]
     Active Substance: BISOPROLOL FUMARATE
     Dosage: 5 MG, BID (5 MG IN THE MORNING AND 7.5 MG IN THE EVENING)
     Route: 048

REACTIONS (9)
  - Listless [Not Recovered/Not Resolved]
  - Pulmonary oedema [Unknown]
  - Asthenia [Not Recovered/Not Resolved]
  - Angina pectoris [Not Recovered/Not Resolved]
  - Limb discomfort [Not Recovered/Not Resolved]
  - Dyspnoea [Not Recovered/Not Resolved]
  - Panic attack [Not Recovered/Not Resolved]
  - Apathy [Unknown]
  - Drug interaction [Not Recovered/Not Resolved]

NARRATIVE: CASE EVENT DATE: 2020
